FAERS Safety Report 4546497-8 (Version None)
Quarter: 2005Q1

REPORT INFORMATION
  Report Type: 
  Country: None (occurrence: None)
  Receive Date: 20050106
  Receipt Date: 20041130
  Transmission Date: 20050727
  Serious: Yes (Hospitalization)
  Sender: FDA-Public Use
  Company Number: US-GLAXOSMITHKLINE-A0535576A

PATIENT
  Age: 48 Year
  Sex: Female

DRUGS (3)
  1. ADVAIR DISKUS 100/50 [Suspect]
     Indication: CHRONIC OBSTRUCTIVE PULMONARY DISEASE
     Route: 055
     Dates: start: 19991101, end: 20041122
  2. PAXIL [Suspect]
     Indication: PREMENSTRUAL SYNDROME
     Dosage: 20MG PER DAY
     Route: 048
     Dates: start: 20020201, end: 20040201
  3. ACIPHEX [Concomitant]

REACTIONS (6)
  - CONVULSION [None]
  - DEPRESSION [None]
  - DYSPHONIA [None]
  - PARAESTHESIA [None]
  - TREATMENT NONCOMPLIANCE [None]
  - WEIGHT INCREASED [None]
